FAERS Safety Report 9887248 (Version 1)
Quarter: 2014Q1

REPORT INFORMATION
  Report Type: Spontaneous
  Country: US (occurrence: US)
  Receive Date: 20140211
  Receipt Date: 20140211
  Transmission Date: 20141002
  Serious: No
  Sender: FDA-Public Use
  Company Number: US-BIOGENIDEC-2014BI010175

PATIENT
  Age: 65 Year
  Sex: Female

DRUGS (10)
  1. TECFIDERA [Suspect]
     Indication: MULTIPLE SCLEROSIS
     Route: 048
  2. ASPIRIN EC LO- DOSE [Concomitant]
  3. FISH OIL [Concomitant]
  4. FLAXSEED OIL [Concomitant]
  5. KLONOPIN [Concomitant]
  6. PRILOSEC [Concomitant]
  7. RANITIDINE ACID REDUCER [Concomitant]
  8. SYNTHROID [Concomitant]
  9. VITAMIN D3 [Concomitant]
  10. VITAMIN E [Concomitant]

REACTIONS (2)
  - Herpes zoster [Unknown]
  - Flushing [Unknown]
